FAERS Safety Report 7633195-7 (Version None)
Quarter: 2011Q3

REPORT INFORMATION
  Report Type: 
  Country: None (occurrence: None)
  Receive Date: 20110725
  Receipt Date: 20110715
  Transmission Date: 20111222
  Serious: Yes (Other)
  Sender: FDA-Public Use
  Company Number: CA-ROCHE-774674

PATIENT
  Sex: Male
  Weight: 105.2 kg

DRUGS (13)
  1. KEPPRA [Concomitant]
  2. ZOFRAN [Concomitant]
  3. METHYLPREDNISOLONE [Concomitant]
     Indication: PREMEDICATION
     Route: 042
     Dates: start: 20110429, end: 20110429
  4. BEVACIZUMAB [Suspect]
     Indication: GLIOBLASTOMA
     Dosage: FORM: INFUSION OTHER INDICATION: GLIOBLASTOMA
     Route: 042
     Dates: start: 20101112
  5. BEVACIZUMAB [Suspect]
     Route: 042
     Dates: start: 20101210
  6. PLAVIX [Concomitant]
  7. LIPITOR [Concomitant]
  8. DIPHENHYDRAMINE HYDROCHLORIDE [Concomitant]
     Indication: PREMEDICATION
     Route: 048
     Dates: start: 20110429, end: 20110429
  9. TEMOZOLOMIDE [Concomitant]
  10. PROCARBAZINE HYDROCHLORIDE [Concomitant]
  11. ACETAMINOPHEN [Concomitant]
     Indication: PREMEDICATION
     Route: 048
     Dates: start: 20110429, end: 20110429
  12. BEVACIZUMAB [Suspect]
     Route: 042
     Dates: start: 20110107
  13. TEMODAL [Concomitant]

REACTIONS (18)
  - TRANSFERRIN SATURATION DECREASED [None]
  - HIGH DENSITY LIPOPROTEIN DECREASED [None]
  - IRON BINDING CAPACITY UNSATURATED INCREASED [None]
  - SERUM FERRITIN INCREASED [None]
  - DYSPNOEA [None]
  - ALANINE AMINOTRANSFERASE INCREASED [None]
  - BLOOD GLUCOSE INCREASED [None]
  - THYROXINE FREE DECREASED [None]
  - ASPARTATE AMINOTRANSFERASE INCREASED [None]
  - GAMMA-GLUTAMYLTRANSFERASE INCREASED [None]
  - DEEP VEIN THROMBOSIS [None]
  - MEAN PLATELET VOLUME DECREASED [None]
  - RED BLOOD CELL SEDIMENTATION RATE INCREASED [None]
  - BLOOD TRIGLYCERIDES INCREASED [None]
  - BRAIN OEDEMA [None]
  - BLOOD CREATINE PHOSPHOKINASE INCREASED [None]
  - BLOOD TEST ABNORMAL [None]
  - BLOOD BILIRUBIN INCREASED [None]
